FAERS Safety Report 4313556-4 (Version None)
Quarter: 2004Q1

REPORT INFORMATION
  Report Type: 
  Country: None (occurrence: None)
  Receive Date: 20040304
  Receipt Date: 20040205
  Transmission Date: 20041129
  Serious: Yes (Death)
  Sender: FDA-Public Use
  Company Number: FR_040203576

PATIENT
  Age: 59 Year
  Sex: Male
  Weight: 70 kg

DRUGS (1)
  1. ZYPREXA [Suspect]
     Indication: PSYCHOTIC DISORDER
     Dosage: 10 MG/DAY
     Dates: start: 20011212

REACTIONS (1)
  - GASTROINTESTINAL HAEMORRHAGE [None]
